FAERS Safety Report 6800353-0 (Version None)
Quarter: 2010Q2

REPORT INFORMATION
  Report Type: 
  Country: None (occurrence: None)
  Receive Date: 20100623
  Receipt Date: 20100615
  Transmission Date: 20101027
  Serious: Yes (Hospitalization)
  Sender: FDA-Public Use
  Company Number: 2010SP033678

PATIENT
  Age: 69 Year
  Sex: Female

DRUGS (1)
  1. ONCOTICE [Suspect]
     Indication: BLADDER CANCER RECURRENT

REACTIONS (2)
  - CEREBRAL INFARCTION [None]
  - CONFUSIONAL STATE [None]
